FAERS Safety Report 9571861 (Version 3)
Quarter: 2013Q4

REPORT INFORMATION
  Report Type: Spontaneous
  Country: JP (occurrence: JP)
  Receive Date: 20131001
  Receipt Date: 20131220
  Transmission Date: 20140711
  Serious: Yes (Other)
  Sender: FDA-Public Use
  Company Number: JP-PFIZER INC-2013279911

PATIENT
  Age: 62 Year
  Sex: Female

DRUGS (4)
  1. CHAMPIX [Suspect]
     Indication: SMOKING CESSATION THERAPY
     Dosage: 0.5 MG/DAY
     Dates: start: 20130829, end: 2013
  2. CHAMPIX [Suspect]
     Dosage: 0.5 MG, 2X/DAY
     Dates: start: 2013, end: 2013
  3. CHAMPIX [Suspect]
     Dosage: 1 MG, 2X/DAY
     Dates: start: 2013, end: 2013
  4. CHAMPIX [Suspect]
     Dosage: 0.5 MG/DAY
     Dates: start: 2013, end: 2013

REACTIONS (4)
  - Road traffic accident [Unknown]
  - Feeling abnormal [Unknown]
  - Tobacco withdrawal symptoms [Unknown]
  - Insomnia [Unknown]
